FAERS Safety Report 24874890 (Version 1)
Quarter: 2025Q1

REPORT INFORMATION
  Report Type: Spontaneous
  Country: FR (occurrence: FR)
  Receive Date: 20250122
  Receipt Date: 20250122
  Transmission Date: 20250409
  Serious: Yes (Other)
  Sender: MYLAN
  Company Number: None

PATIENT
  Age: 40 Year
  Sex: Male
  Weight: 70 kg

DRUGS (6)
  1. GABAPENTIN [Suspect]
     Active Substance: GABAPENTIN
     Indication: Product used for unknown indication
     Route: 048
     Dates: start: 20241029, end: 20241029
  2. COCAINE [Suspect]
     Active Substance: COCAINE
     Indication: Product used for unknown indication
     Route: 045
     Dates: start: 20241029, end: 20241029
  3. HEROIN [Suspect]
     Active Substance: DIAMORPHINE
     Indication: Product used for unknown indication
     Route: 065
     Dates: start: 20241029, end: 20241029
  4. METHADONE [Suspect]
     Active Substance: METHADONE HYDROCHLORIDE
     Indication: Product used for unknown indication
     Route: 048
     Dates: start: 20241029, end: 20241029
  5. OXAZEPAM [Suspect]
     Active Substance: OXAZEPAM
     Indication: Product used for unknown indication
     Route: 048
     Dates: start: 20241029, end: 20241029
  6. CYAMEMAZINE [Suspect]
     Active Substance: CYAMEMAZINE
     Indication: Product used for unknown indication
     Route: 048
     Dates: start: 20241029, end: 20241029

REACTIONS (3)
  - Substance use disorder [Recovered/Resolved]
  - Poisoning deliberate [Recovered/Resolved]
  - Somnolence [Recovered/Resolved]

NARRATIVE: CASE EVENT DATE: 20241029
